FAERS Safety Report 5339228-5 (Version None)
Quarter: 2007Q2

REPORT INFORMATION
  Report Type: 
  Country: None (occurrence: None)
  Receive Date: 20070329
  Receipt Date: 20061215
  Transmission Date: 20071010
  Serious: Yes (Disabling)
  Sender: FDA-Public Use
  Company Number: A03200607543

PATIENT
  Age: 52 Year
  Sex: Female

DRUGS (3)
  1. AMBIEN [Suspect]
     Indication: INSOMNIA
     Dosage: 12.5 MG HS - ORAL
     Route: 048
     Dates: start: 20061214, end: 20061215
  2. ATORVASTATIN CALCIUM [Concomitant]
  3. ORAL CONTRACEPTIVE NOS [Concomitant]

REACTIONS (4)
  - DIZZINESS [None]
  - HANGOVER [None]
  - NAUSEA [None]
  - SOMNOLENCE [None]
